FAERS Safety Report 5866828-6 (Version None)
Quarter: 2008Q3

REPORT INFORMATION
  Report Type: 
  Country: None (occurrence: None)
  Receive Date: 20080828
  Receipt Date: 20080828
  Transmission Date: 20090109
  Serious: Yes (Other)
  Sender: FDA-Public Use
  Company Number: None

PATIENT
  Sex: Male

DRUGS (1)
  1. TRILEPTAL [Suspect]
     Dosage: 1200 MG BID P.O.
     Route: 048
     Dates: start: 20070221

REACTIONS (1)
  - ELECTROENCEPHALOGRAM ABNORMAL [None]
